FAERS Safety Report 12927177 (Version 1)
Quarter: 2016Q4

REPORT INFORMATION
  Report Type: Report from Study
  Country: CO (occurrence: CO)
  Receive Date: 20161109
  Receipt Date: 20161109
  Transmission Date: 20170207
  Serious: Yes (Death, Hospitalization, Other)
  Sender: FDA-Public Use
  Company Number: CO-ALEXION PHARMACEUTICALS INC.-A201608651

PATIENT
  Age: 8 Month
  Sex: Male
  Weight: 10 kg

DRUGS (1)
  1. SOLIRIS [Suspect]
     Active Substance: ECULIZUMAB
     Indication: HAEMOLYTIC URAEMIC SYNDROME
     Dosage: 300 MG, QW
     Route: 042
     Dates: start: 20160120, end: 20160120

REACTIONS (11)
  - Low cardiac output syndrome [Unknown]
  - Anaemia [Unknown]
  - Acute kidney injury [Fatal]
  - Thrombocytopenia [Unknown]
  - Multiple organ dysfunction syndrome [Fatal]
  - Thrombotic microangiopathy [Unknown]
  - Respiratory syncytial virus bronchiolitis [Unknown]
  - Distributive shock [Unknown]
  - Cardiogenic shock [Unknown]
  - Liver injury [Unknown]
  - Myocarditis [Unknown]

NARRATIVE: CASE EVENT DATE: 20160120
